FAERS Safety Report 16162898 (Version 1)
Quarter: 2019Q2

REPORT INFORMATION
  Report Type: Spontaneous
  Country: US (occurrence: US)
  Receive Date: 20190405
  Receipt Date: 20190405
  Transmission Date: 20190711
  Serious: No
  Sender: FDA-Public Use
  Company Number: US-TEVA-2019-US-1025779

PATIENT
  Sex: Female
  Weight: 48.58 kg

DRUGS (3)
  1. SULFASALAZINE ACTAVIS [Suspect]
     Active Substance: SULFASALAZINE
     Indication: INFLAMMATION
  2. METHOTREXATE. [Suspect]
     Active Substance: METHOTREXATE
     Indication: RHEUMATOID ARTHRITIS
     Dosage: USING OVER 7 YEARS OFF AND ON
     Route: 048
  3. SULFASALAZINE ACTAVIS [Suspect]
     Active Substance: SULFASALAZINE
     Indication: ARTHRITIS
     Dosage: ABOUT 2 YEARS FROM NOW
     Route: 048

REACTIONS (1)
  - Drug ineffective [Unknown]
